FAERS Safety Report 11840647 (Version 1)
Quarter: 2015Q4

REPORT INFORMATION
  Report Type: Spontaneous
  Country: CH (occurrence: CH)
  Receive Date: 20151216
  Receipt Date: 20151216
  Transmission Date: 20160305
  Serious: Yes (Hospitalization, Other)
  Sender: FDA-Public Use
  Company Number: CH-EISAI MEDICAL RESEARCH-EC-2015-011814

PATIENT
  Age: 50 Year
  Sex: Female

DRUGS (14)
  1. INOVELON [Suspect]
     Active Substance: RUFINAMIDE
     Dosage: 2000 MG
     Route: 048
     Dates: start: 201407, end: 201507
  2. INOVELON [Suspect]
     Active Substance: RUFINAMIDE
     Dosage: 1400 MG
     Route: 048
     Dates: start: 20150923, end: 20150927
  3. INOVELON [Suspect]
     Active Substance: RUFINAMIDE
     Dosage: 2400 MG
     Route: 048
     Dates: start: 201507, end: 2015
  4. INOVELON [Suspect]
     Active Substance: RUFINAMIDE
     Dosage: 2400 MG
     Route: 048
     Dates: end: 201407
  5. DEPAKINE CHRONO [Concomitant]
     Active Substance: VALPROATE SODIUM
     Indication: EPILEPSY
     Dosage: 900 MG
     Route: 048
  6. VESICARE [Concomitant]
     Active Substance: SOLIFENACIN SUCCINATE
     Indication: PRODUCT USED FOR UNKNOWN INDICATION
     Dosage: 5 MG
     Route: 048
  7. LAMICTAL DISP [Concomitant]
     Indication: EPILEPSY
     Dosage: 300 MG
     Route: 048
  8. TOPAMAX [Concomitant]
     Active Substance: TOPIRAMATE
     Indication: EPILEPSY
     Dosage: 800 MG
     Route: 048
  9. URBANYL [Concomitant]
     Active Substance: CLOBAZAM
     Indication: EPILEPSY
     Dosage: 20 MG
     Route: 048
  10. INOVELON [Suspect]
     Active Substance: RUFINAMIDE
     Dosage: 1200 MG
     Route: 048
     Dates: start: 20150928
  11. COLOSAN MITE [Concomitant]
     Indication: PRODUCT USED FOR UNKNOWN INDICATION
     Dosage: UNKNOWN
  12. INOVELON [Suspect]
     Active Substance: RUFINAMIDE
     Dosage: 2000 MG
     Route: 048
     Dates: start: 2015, end: 20150922
  13. CALCIMAGON D3 FORTE [Concomitant]
     Indication: PRODUCT USED FOR UNKNOWN INDICATION
     Dosage: 800 I.E
     Route: 048
  14. INOVELON [Suspect]
     Active Substance: RUFINAMIDE
     Indication: EPILEPSY
     Dosage: UNKNOWN
     Route: 048
     Dates: start: 2012

REACTIONS (6)
  - Nystagmus [Unknown]
  - Anticonvulsant drug level increased [Recovered/Resolved]
  - Ataxia [Recovered/Resolved]
  - Vomiting [Unknown]
  - Gait disturbance [Recovered/Resolved]
  - Nausea [Recovered/Resolved]

NARRATIVE: CASE EVENT DATE: 201508
